FAERS Safety Report 9314222 (Version 1)
Quarter: 2013Q2

REPORT INFORMATION
  Report Type: Spontaneous
  Country: US (occurrence: US)
  Receive Date: 20130529
  Receipt Date: 20130529
  Transmission Date: 20140414
  Serious: No
  Sender: FDA-Public Use
  Company Number: US-009507513-1305USA016038

PATIENT
  Sex: Male

DRUGS (2)
  1. PEG-INTRON [Suspect]
     Indication: HEPATITIS C
     Dosage: REDIPEN
     Dates: start: 20130426
  2. REBETOL [Suspect]
     Indication: HEPATITIS C
     Dosage: UNK
     Route: 048
     Dates: start: 20130426

REACTIONS (21)
  - Injection site reaction [Unknown]
  - Laceration [Unknown]
  - Injection site reaction [Unknown]
  - Back pain [Unknown]
  - Back pain [Unknown]
  - Influenza like illness [Unknown]
  - Chills [Unknown]
  - Dizziness [Unknown]
  - Asthenia [Unknown]
  - Fatigue [Unknown]
  - Myalgia [Unknown]
  - Injection site erythema [Unknown]
  - Injection site pruritus [Unknown]
  - Back pain [Unknown]
  - Influenza [Unknown]
  - Chills [Unknown]
  - Dizziness [Unknown]
  - Fatigue [Unknown]
  - Asthenia [Unknown]
  - Laceration [Unknown]
  - Pain [Unknown]
